FAERS Safety Report 5828771-8 (Version None)
Quarter: 2008Q3

REPORT INFORMATION
  Report Type: 
  Country: None (occurrence: None)
  Receive Date: 20080731
  Receipt Date: 20080724
  Transmission Date: 20090109
  Serious: Yes (Hospitalization, Other)
  Sender: FDA-Public Use
  Company Number: US-MERCK-0705USA05594

PATIENT
  Age: 51 Year
  Sex: Female
  Weight: 56 kg

DRUGS (6)
  1. FOSAMAX [Suspect]
     Indication: OSTEOPOROSIS
     Route: 048
     Dates: start: 20000901, end: 20001001
  2. FOSAMAX [Suspect]
     Route: 048
     Dates: start: 20001001, end: 20010801
  3. FOSAMAX [Suspect]
     Route: 048
     Dates: start: 20010801, end: 20021001
  4. ESTROGENS (UNSPECIFIED) [Concomitant]
     Indication: HORMONE REPLACEMENT THERAPY
     Route: 065
     Dates: start: 19960101
  5. SYNTHROID [Concomitant]
     Indication: HYPOTHYROIDISM
     Route: 065
     Dates: start: 19900101, end: 20060101
  6. ACTONEL [Suspect]
     Route: 048
     Dates: start: 20041206, end: 20060616

REACTIONS (32)
  - ABDOMINAL MASS [None]
  - ANXIETY [None]
  - ARTHRALGIA [None]
  - BACK DISORDER [None]
  - CARPAL TUNNEL SYNDROME [None]
  - CHEST PAIN [None]
  - DENTAL CARIES [None]
  - DRUG INTOLERANCE [None]
  - EMOTIONAL DISTRESS [None]
  - FATIGUE [None]
  - GINGIVAL BLEEDING [None]
  - GINGIVAL DISORDER [None]
  - HEADACHE [None]
  - HYPOAESTHESIA [None]
  - INCREASED TENDENCY TO BRUISE [None]
  - INFECTION [None]
  - LYMPHADENITIS [None]
  - NAUSEA [None]
  - OEDEMA MOUTH [None]
  - ORAL DISORDER [None]
  - ORAL PAIN [None]
  - OSTEOMYELITIS [None]
  - OSTEONECROSIS [None]
  - OVARIAN MASS [None]
  - PAIN IN JAW [None]
  - PARAESTHESIA [None]
  - POLYARTHRITIS [None]
  - RESORPTION BONE INCREASED [None]
  - ROAD TRAFFIC ACCIDENT [None]
  - TOOTH ABSCESS [None]
  - UTERINE DISORDER [None]
  - WEIGHT INCREASED [None]
